FAERS Safety Report 15179625 (Version 3)
Quarter: 2019Q1

REPORT INFORMATION
  Report Type: Report from Study
  Country: None (occurrence: US)
  Receive Date: 20180723
  Receipt Date: 20190221
  Transmission Date: 20190417
  Serious: Yes (Hospitalization)
  Sender: FDA-Public Use
  Company Number: US-ABBVIE-18K-163-2426461-00

PATIENT
  Age: 43 Year
  Sex: Male
  Weight: 127.12 kg

DRUGS (2)
  1. HUMIRA [Suspect]
     Active Substance: ADALIMUMAB
     Indication: HIDRADENITIS
     Route: 058
     Dates: start: 201712, end: 201806
  2. METOPROLOL. [Concomitant]
     Active Substance: METOPROLOL
     Indication: HYPERTENSION

REACTIONS (6)
  - Orchitis [Not Recovered/Not Resolved]
  - Pain [Not Recovered/Not Resolved]
  - Hidradenitis [Not Recovered/Not Resolved]
  - Testicular swelling [Recovering/Resolving]
  - Drug ineffective [Not Recovered/Not Resolved]
  - Inflammation [Not Recovered/Not Resolved]

NARRATIVE: CASE EVENT DATE: 2018
